FAERS Safety Report 11079726 (Version 2)
Quarter: 2015Q2

REPORT INFORMATION
  Report Type: Spontaneous
  Country: US (occurrence: US)
  Receive Date: 20150430
  Receipt Date: 20150526
  Transmission Date: 20150821
  Serious: No
  Sender: FDA-Public Use
  Company Number: US-BAYER-2015-179323

PATIENT
  Age: 58 Year
  Sex: Male
  Weight: 104.31 kg

DRUGS (2)
  1. METFORMIN [Concomitant]
     Active Substance: METFORMIN HYDROCHLORIDE
  2. ALEVE [Suspect]
     Active Substance: NAPROXEN SODIUM
     Indication: ARTHRALGIA
     Dosage: UNK DF, QD
     Route: 048
     Dates: start: 2005

REACTIONS (2)
  - Drug ineffective for unapproved indication [None]
  - Incorrect drug administration duration [None]

NARRATIVE: CASE EVENT DATE: 2005
